FAERS Safety Report 5820337-9 (Version None)
Quarter: 2008Q3

REPORT INFORMATION
  Report Type: 
  Country: None (occurrence: None)
  Receive Date: 20080724
  Receipt Date: 20070608
  Transmission Date: 20090109
  Serious: Yes (Hospitalization)
  Sender: FDA-Public Use
  Company Number: A0654851A

PATIENT
  Age: 70 Year
  Sex: Male

DRUGS (13)
  1. AVANDIA [Suspect]
     Dosage: 4MG IN THE MORNING
     Route: 048
     Dates: start: 20030101, end: 20070601
  2. ASPIRIN [Concomitant]
  3. PLAVIX [Concomitant]
  4. COZAAR [Concomitant]
  5. PYRIDOXINE HCL [Concomitant]
  6. ZOCOR [Concomitant]
  7. PROZAC [Concomitant]
  8. COREG [Concomitant]
  9. LASIX [Concomitant]
  10. INSPIRYL [Concomitant]
  11. CIMETIDINE [Concomitant]
  12. LOVAZA [Concomitant]
  13. EYE DROPS [Concomitant]

REACTIONS (1)
  - CARDIAC FAILURE CONGESTIVE [None]
